FAERS Safety Report 7806777-7 (Version None)
Quarter: 2011Q4

REPORT INFORMATION
  Report Type: 
  Country: None (occurrence: None)
  Receive Date: 20111011
  Receipt Date: 20110926
  Transmission Date: 20120403
  Serious: Yes (Hospitalization)
  Sender: FDA-Public Use
  Company Number: PHHY2011US45948

PATIENT
  Sex: Female

DRUGS (6)
  1. EXELON [Suspect]
  2. PREDNISONE [Concomitant]
  3. EXELON [Suspect]
     Dosage: 9.5 MG, 1 PATCH PER DAY
     Route: 062
  4. VITAMIN D [Concomitant]
     Dosage: UNK UKN, UNK
  5. REMERON [Concomitant]
  6. MIRTAZAPINE [Suspect]
     Dosage: 15 MG, QD

REACTIONS (7)
  - VOMITING [None]
  - APPLICATION SITE ERYTHEMA [None]
  - DIARRHOEA [None]
  - HEADACHE [None]
  - CARDIAC ARREST [None]
  - MALAISE [None]
  - APPLICATION SITE PRURITUS [None]
